FAERS Safety Report 4519107-3 (Version None)
Quarter: 2004Q4

REPORT INFORMATION
  Report Type: 
  Country: None (occurrence: None)
  Receive Date: 20041206
  Receipt Date: 20041125
  Transmission Date: 20050328
  Serious: Yes (Other)
  Sender: FDA-Public Use
  Company Number: BE-AMGEN-UK100802

PATIENT
  Age: 33 Year
  Sex: Female

DRUGS (4)
  1. NEULASTA [Suspect]
     Indication: CHEMOTHERAPY
     Route: 058
  2. BLEOMYCIN [Concomitant]
     Route: 042
  3. ETOPOSIDE [Concomitant]
     Route: 042
  4. CISPLATIN [Concomitant]
     Route: 042

REACTIONS (4)
  - CATHETER RELATED COMPLICATION [None]
  - CELLULITIS [None]
  - LEUKOCYTOSIS [None]
  - MYOCARDIAL INFARCTION [None]
